FAERS Safety Report 5523562-X (Version None)
Quarter: 2007Q4

REPORT INFORMATION
  Report Type: 
  Country: None (occurrence: None)
  Receive Date: 20071121
  Receipt Date: 20071114
  Transmission Date: 20080405
  Serious: No
  Sender: FDA-Public Use
  Company Number: FR-BAXTER-2007BH003245

PATIENT
  Age: 51 Year
  Sex: Female

DRUGS (13)
  1. EXTRANEAL [Suspect]
     Indication: RENAL FAILURE CHRONIC
     Route: 033
     Dates: start: 20070228, end: 20070326
  2. EXTRANEAL [Suspect]
     Route: 033
     Dates: start: 20070228, end: 20070326
  3. DIANEAL [Suspect]
     Indication: RENAL FAILURE CHRONIC
     Route: 033
     Dates: start: 20070227
  4. COZAAR [Concomitant]
  5. RENAGEL [Concomitant]
  6. PLAVIX [Concomitant]
  7. ALLOPURINOL [Concomitant]
  8. FUROSEMIDE [Concomitant]
  9. KAYEXALATE [Concomitant]
  10. NEXIUM [Concomitant]
  11. MONO-TILDIEM [Concomitant]
  12. EPOETIN BETA [Concomitant]
  13. CINACALCET [Concomitant]
     Indication: HYPERPARATHYROIDISM
     Dates: start: 20070301

REACTIONS (3)
  - FATIGUE [None]
  - PERITONEAL TUBERCULOSIS [None]
  - PROCEDURAL COMPLICATION [None]
